FAERS Safety Report 14869601 (Version 3)
Quarter: 2018Q2

REPORT INFORMATION
  Report Type: Report from Study
  Country: AU (occurrence: AU)
  Receive Date: 20180509
  Receipt Date: 20180525
  Transmission Date: 20180711
  Serious: Yes (Other)
  Sender: FDA-Public Use
  Company Number: AU-MYLANLABS-2018M1030848

PATIENT
  Age: 48 Year
  Sex: Male

DRUGS (9)
  1. PREGABALIN. [Concomitant]
     Active Substance: PREGABALIN
     Indication: PRODUCT USED FOR UNKNOWN INDICATION
     Dosage: 75 MG, BID
     Dates: start: 2018
  2. ATROPT [Concomitant]
     Indication: PRODUCT USED FOR UNKNOWN INDICATION
     Dosage: 2 DROPS, PRN
     Dates: start: 2018
  3. MINIRIN [Concomitant]
     Active Substance: DESMOPRESSIN ACETATE
     Indication: PRODUCT USED FOR UNKNOWN INDICATION
     Dosage: 200 ?G, PM
     Dates: start: 2018
  4. BETMIGA [Concomitant]
     Active Substance: MIRABEGRON
     Indication: PRODUCT USED FOR UNKNOWN INDICATION
     Dosage: 50 MG, AM
     Dates: start: 2018
  5. METFORMIN [Concomitant]
     Active Substance: METFORMIN HYDROCHLORIDE
     Indication: PRODUCT USED FOR UNKNOWN INDICATION
     Dosage: 500 MG, PM
     Dates: start: 2018
  6. CLOPIXOL                           /00876702/ [Concomitant]
     Active Substance: ZUCLOPENTHIXOL ACETATE
     Indication: PRODUCT USED FOR UNKNOWN INDICATION
     Dosage: 10 MG, PM
     Dates: start: 2018
  7. SERTRALINE [Concomitant]
     Active Substance: SERTRALINE HYDROCHLORIDE
     Indication: PRODUCT USED FOR UNKNOWN INDICATION
     Dosage: 200 MG, AM
     Dates: start: 2018
  8. CLOZARIL [Suspect]
     Active Substance: CLOZAPINE
     Indication: SCHIZOPHRENIA
     Dosage: 450 MG, PM
     Route: 048
     Dates: start: 19960719
  9. ATIVAN [Concomitant]
     Active Substance: LORAZEPAM
     Indication: PRODUCT USED FOR UNKNOWN INDICATION
     Dosage: 1 MG, BID
     Dates: start: 2018

REACTIONS (13)
  - Mitral valve incompetence [Unknown]
  - Blood urea increased [Recovered/Resolved]
  - Blood creatinine increased [Recovered/Resolved]
  - C-reactive protein increased [Recovered/Resolved]
  - Blood osmolarity increased [Recovered/Resolved]
  - Blood phosphorus decreased [Recovered/Resolved]
  - Blood glucose increased [Recovering/Resolving]
  - Tachycardia [Not Recovered/Not Resolved]
  - Tricuspid valve incompetence [Unknown]
  - Blood potassium decreased [Recovered/Resolved]
  - Blood bicarbonate decreased [Recovered/Resolved]
  - Anion gap increased [Recovering/Resolving]
  - Glomerular filtration rate decreased [Recovered/Resolved]

NARRATIVE: CASE EVENT DATE: 20151112
